FAERS Safety Report 23198670 (Version 1)
Quarter: 2023Q4

REPORT INFORMATION
  Report Type: Report from Study
  Country: CA (occurrence: CA)
  Receive Date: 20231117
  Receipt Date: 20231117
  Transmission Date: 20240109
  Serious: Yes (Hospitalization, Other)
  Sender: FDA-Public Use
  Company Number: CA-VER-202300489

PATIENT
  Age: 75 Year
  Sex: Male

DRUGS (2)
  1. TRIPTORELIN PAMOATE [Suspect]
     Active Substance: TRIPTORELIN PAMOATE
     Indication: Prostate cancer
     Dosage: ??22.5 MILLIGRAM, ONCE / 6 MONTHS (22.5 MG,6 M)
     Route: 030
     Dates: start: 20230502, end: 20230502
  2. TRIPTORELIN PAMOATE [Suspect]
     Active Substance: TRIPTORELIN PAMOATE
     Indication: Prostate cancer
     Dosage: 22.5 MILLIGRAM, ONCE / 6 MONTHS (22.5 MG,6 M)
     Route: 030
     Dates: start: 20231031, end: 20231031

REACTIONS (2)
  - Bladder disorder [Recovering/Resolving]
  - Prostatic operation [Recovering/Resolving]
